FAERS Safety Report 5959181-0 (Version None)
Quarter: 2008Q4

REPORT INFORMATION
  Report Type: 
  Country: None (occurrence: None)
  Receive Date: 20081120
  Receipt Date: 20080513
  Transmission Date: 20090506
  Serious: No
  Sender: FDA-Public Use
  Company Number: A0727710A

PATIENT
  Age: 63 Year
  Sex: Female

DRUGS (5)
  1. WELLBUTRIN SR [Suspect]
     Indication: DEPRESSION
     Dosage: 300MG PER DAY
     Route: 048
     Dates: start: 20070901
  2. TENORMIN [Concomitant]
  3. LIPITOR [Concomitant]
  4. ACIPHEX [Concomitant]
  5. DIAZIDE [Concomitant]

REACTIONS (1)
  - ALOPECIA [None]
